FAERS Safety Report 9442474 (Version 2)
Quarter: 2013Q3

REPORT INFORMATION
  Report Type: Spontaneous
  Country: US (occurrence: US)
  Receive Date: 20130806
  Receipt Date: 20130926
  Transmission Date: 20140515
  Serious: Yes (Hospitalization, Other)
  Sender: FDA-Public Use
  Company Number: US-PFIZER INC-2013227773

PATIENT
  Sex: Male

DRUGS (2)
  1. LYRICA [Suspect]
     Indication: HERPES ZOSTER
     Dosage: UNK
     Dates: start: 2013
  2. LYRICA [Suspect]
     Indication: DIABETIC NEPHROPATHY

REACTIONS (3)
  - Diabetic foot infection [Unknown]
  - Staphylococcal infection [Unknown]
  - Blindness [Unknown]
